FAERS Safety Report 5381469-5 (Version None)
Quarter: 2007Q2

REPORT INFORMATION
  Report Type: 
  Country: None (occurrence: None)
  Receive Date: 20070629
  Receipt Date: 20070202
  Transmission Date: 20071010
  Serious: Yes (Death)
  Sender: FDA-Public Use
  Company Number: 2005124540

PATIENT
  Age: 16 Year
  Sex: Male
  Weight: 54.9 kg

DRUGS (2)
  1. ZOLOFT [Suspect]
     Dosage: 50 MG (1 IN 1 D)
  2. DEPAKOTE [Concomitant]

REACTIONS (3)
  - COMPLETED SUICIDE [None]
  - DRUG INEFFECTIVE [None]
  - IRRITABILITY [None]
